FAERS Safety Report 15969506 (Version 2)
Quarter: 2019Q1

REPORT INFORMATION
  Report Type: Spontaneous
  Country: US (occurrence: US)
  Receive Date: 20190215
  Receipt Date: 20190221
  Transmission Date: 20190418
  Serious: Yes (Other)
  Sender: FDA-Public Use
  Company Number: US-PFIZER INC-2019068252

PATIENT
  Age: 68 Year
  Sex: Male
  Weight: 127 kg

DRUGS (1)
  1. XELJANZ XR [Suspect]
     Active Substance: TOFACITINIB CITRATE
     Indication: ARTHRITIS
     Dosage: 11 MG, ONCE A DAY
     Route: 048
     Dates: start: 20190131, end: 20190207

REACTIONS (5)
  - Wheezing [Unknown]
  - Respiratory tract congestion [Unknown]
  - Respiratory tract infection [Recovering/Resolving]
  - Cough [Unknown]
  - Infection [Recovering/Resolving]

NARRATIVE: CASE EVENT DATE: 201902
